FAERS Safety Report 4796749-1 (Version None)
Quarter: 2005Q4

REPORT INFORMATION
  Report Type: 
  Country: None (occurrence: None)
  Receive Date: 20051007
  Receipt Date: 20050927
  Transmission Date: 20060501
  Serious: Yes (Hospitalization)
  Sender: FDA-Public Use
  Company Number: FRWYE011027SEP05

PATIENT
  Age: 39 Year
  Sex: Female

DRUGS (3)
  1. EFFEXOR [Suspect]
     Dosage: 2 UNITS DAILY ORAL
     Route: 048
     Dates: start: 20050701
  2. SPECIAFOLDINE (FOLIC ACID) [Concomitant]
  3. CLONAZEPAM [Concomitant]

REACTIONS (2)
  - AMMONIA INCREASED [None]
  - CONDITION AGGRAVATED [None]
